FAERS Safety Report 13226831 (Version 2)
Quarter: 2017Q2

REPORT INFORMATION
  Report Type: Spontaneous
  Country: US (occurrence: US)
  Receive Date: 20170213
  Receipt Date: 20170411
  Transmission Date: 20170830
  Serious: Yes (Death)
  Sender: FDA-Public Use
  Company Number: US-INSYS THERAPEUTICS, INC-INS201702-000107

PATIENT
  Age: 66 Year
  Sex: Female

DRUGS (3)
  1. FENTANYL. [Concomitant]
     Active Substance: FENTANYL
  2. OXYCODONE [Concomitant]
     Active Substance: OXYCODONE
  3. SUBSYS [Suspect]
     Active Substance: FENTANYL
     Indication: BREAKTHROUGH PAIN
     Route: 060

REACTIONS (1)
  - Neoplasm progression [Fatal]

NARRATIVE: CASE EVENT DATE: 201611
